FAERS Safety Report 5866964-4 (Version None)
Quarter: 2008Q3

REPORT INFORMATION
  Report Type: 
  Country: None (occurrence: None)
  Receive Date: 20080828
  Receipt Date: 20080828
  Transmission Date: 20090109
  Serious: Yes (Hospitalization)
  Sender: FDA-Public Use
  Company Number: None

PATIENT
  Age: 68 Year
  Sex: Male
  Weight: 65 kg

DRUGS (7)
  1. ACYCLOVIR [Suspect]
     Indication: HERPES ZOSTER
     Dosage: 800MG FIVE TIMES DAILY ORAL
     Route: 048
     Dates: start: 20080516, end: 20080519
  2. GABAPENTIN [Concomitant]
  3. LEVOTHYROXINE SODIUM [Concomitant]
  4. CLOPIDOGREL [Concomitant]
  5. OSOMEPRAZOLE [Concomitant]
  6. PROPOXYPHENE HCL AND ACETAMINOPHEN [Concomitant]
  7. SEVELAMER PRN [Concomitant]

REACTIONS (5)
  - COMA [None]
  - DIALYSIS [None]
  - FLUID OVERLOAD [None]
  - HYPERKALAEMIA [None]
  - PNEUMONIA ASPIRATION [None]
